FAERS Safety Report 8776493 (Version 4)
Quarter: 2012Q4

REPORT INFORMATION
  Report Type: 
  Country: CH (occurrence: CH)
  Receive Date: 20120910
  Receipt Date: 20121115
  Transmission Date: 20130627
  Serious: Yes (Other)
  Sender: FDA-Public Use
  Company Number: CH-ABBOTT-12P-151-0978008-00

PATIENT
  Age: 60 Year
  Sex: Female
  Weight: 84 kg

DRUGS (15)
  1. HUMIRA PRE-FILLED SYRINGE [Suspect]
     Indication: SAPHO SYNDROME
     Route: 058
     Dates: start: 200805, end: 20090115
  2. METHOTREXATE [Concomitant]
     Indication: PRODUCT USED FOR UNKNOWN INDICATION
     Route: 058
  3. ATACAND [Concomitant]
     Indication: PRODUCT USED FOR UNKNOWN INDICATION
  4. METO ZEROK [Concomitant]
     Indication: PRODUCT USED FOR UNKNOWN INDICATION
  5. AMLODIPIN 5 [Concomitant]
     Indication: PRODUCT USED FOR UNKNOWN INDICATION
  6. TIROSINT [Concomitant]
     Indication: PRODUCT USED FOR UNKNOWN INDICATION
  7. UNDEFINED HIGH BLOOD PRESSURE MEDICATION [Concomitant]
     Indication: PRODUCT USED FOR UNKNOWN INDICATION
  8. FOLIC ACID [Concomitant]
     Indication: PRODUCT USED FOR UNKNOWN INDICATION
  9. ZURCAL [Concomitant]
     Indication: PRODUCT USED FOR UNKNOWN INDICATION
     Dosage: In AM
  10. CO-DAFALGAN [Concomitant]
     Indication: PRODUCT USED FOR UNKNOWN INDICATION
  11. BLOPRESS PLUS [Concomitant]
     Indication: PRODUCT USED FOR UNKNOWN INDICATION
  12. METFIN [Concomitant]
     Indication: PRODUCT USED FOR UNKNOWN INDICATION
  13. ELTROXIN (LEVOTHYROXIN-NATRIUM) [Concomitant]
     Indication: PRODUCT USED FOR UNKNOWN INDICATION
  14. TRAMADOL [Concomitant]
     Indication: PRODUCT USED FOR UNKNOWN INDICATION
  15. TRITTICO [Concomitant]
     Indication: PRODUCT USED FOR UNKNOWN INDICATION

REACTIONS (1)
  - Myocardial infarction [Unknown]
